FAERS Safety Report 7519085-9 (Version None)
Quarter: 2011Q2

REPORT INFORMATION
  Report Type: 
  Country: None (occurrence: None)
  Receive Date: 20110523
  Receipt Date: 20110513
  Transmission Date: 20111010
  Serious: Yes (Hospitalization)
  Sender: FDA-Public Use
  Company Number: 2011SP022064

PATIENT
  Age: 64 Year
  Sex: Female

DRUGS (16)
  1. ASPIRIN [Concomitant]
  2. ARICEPT [Suspect]
     Indication: PRODUCT USED FOR UNKNOWN INDICATION
     Dosage: 5 MG;, 10 MG;
     Dates: start: 20101212, end: 20101228
  3. ARICEPT [Suspect]
     Indication: PRODUCT USED FOR UNKNOWN INDICATION
     Dosage: 5 MG;, 10 MG;
     Dates: start: 20101207, end: 20101222
  4. ARICEPT [Suspect]
     Indication: PRODUCT USED FOR UNKNOWN INDICATION
     Dosage: 5 MG;, 10 MG;
     Dates: start: 20101206, end: 20101206
  5. NORVASC [Suspect]
     Indication: PRODUCT USED FOR UNKNOWN INDICATION
     Dosage: 5 MG;
     Dates: start: 20101201
  6. ZYPREXA [Suspect]
     Indication: PRODUCT USED FOR UNKNOWN INDICATION
     Dosage: 5 MG;,  10 MG;
     Dates: start: 20101119, end: 20101121
  7. ZYPREXA [Suspect]
     Indication: PRODUCT USED FOR UNKNOWN INDICATION
     Dosage: 5 MG;,  10 MG;
     Dates: start: 20101122, end: 20101221
  8. ZYPREXA [Suspect]
     Indication: PRODUCT USED FOR UNKNOWN INDICATION
     Dosage: 5 MG;,  10 MG;
     Dates: start: 20101222, end: 20110105
  9. LEVOTHYROXINE SODIUM [Concomitant]
  10. COVERSUM /00790701/ [Concomitant]
  11. REMERON [Suspect]
     Indication: DEPRESSION
     Dosage: 30 MG; ; PO, 45 MG; ; PO
     Route: 048
     Dates: start: 20101212
  12. REMERON [Suspect]
     Indication: DEPRESSION
     Dosage: 30 MG; ; PO, 45 MG; ; PO
     Route: 048
     Dates: start: 20101129, end: 20101212
  13. REMERON [Suspect]
     Indication: DEPRESSION
     Dosage: 30 MG; ; PO, 45 MG; ; PO
     Route: 048
     Dates: start: 20101119, end: 20101128
  14. NEXIUM [Concomitant]
  15. FORMOTEROL FUMARATE [Concomitant]
  16. SPIRIVA [Concomitant]

REACTIONS (7)
  - COGNITIVE DISORDER [None]
  - MEMORY IMPAIRMENT [None]
  - SOMNOLENCE [None]
  - ALTERED STATE OF CONSCIOUSNESS [None]
  - ACTIVITIES OF DAILY LIVING IMPAIRED [None]
  - DISTURBANCE IN ATTENTION [None]
  - EXECUTIVE DYSFUNCTION [None]
